FAERS Safety Report 6125636-1 (Version None)
Quarter: 2009Q1

REPORT INFORMATION
  Report Type: 
  Country: None (occurrence: None)
  Receive Date: 20090319
  Receipt Date: 20090319
  Transmission Date: 20090719
  Serious: Yes (Other)
  Sender: FDA-Public Use
  Company Number: None

PATIENT
  Sex: Female
  Weight: 60.8 kg

DRUGS (1)
  1. CYCLOPHOSPHAMIDE [Suspect]
     Dosage: 3540 MG
     Dates: start: 20090124, end: 20090124

REACTIONS (4)
  - ERYTHEMA [None]
  - GLOSSODYNIA [None]
  - ORAL DISCOMFORT [None]
  - SWELLING FACE [None]
